FAERS Safety Report 24536195 (Version 1)
Quarter: 2024Q4

REPORT INFORMATION
  Report Type: Spontaneous
  Country: US (occurrence: None)
  Receive Date: 20241022
  Receipt Date: 20241022
  Transmission Date: 20250115
  Serious: Yes (Disabling, Other)
  Sender: Public
  Company Number: None

PATIENT
  Age: 41 Year
  Sex: Female

DRUGS (3)
  1. ACETAMINOPHEN\HYDROCODONE [Suspect]
     Active Substance: ACETAMINOPHEN\HYDROCODONE
  2. PREGABALIN [Concomitant]
     Active Substance: PREGABALIN
  3. Clonazepam/ Klonopin [Concomitant]

REACTIONS (2)
  - Intestinal obstruction [None]
  - Crying [None]

NARRATIVE: CASE EVENT DATE: 20241020
